FAERS Safety Report 6500458-8 (Version None)
Quarter: 2009Q4

REPORT INFORMATION
  Report Type: 
  Country: None (occurrence: None)
  Receive Date: 20091127
  Receipt Date: 20090804
  Transmission Date: 20100525
  Serious: Yes (Disabling)
  Sender: FDA-Public Use
  Company Number: WAES 0610USA04371

PATIENT
  Age: 70 Year
  Sex: Female

DRUGS (2)
  1. FOSAMAX [Suspect]
     Indication: OSTEOPOROSIS PROPHYLAXIS
     Dosage: PO
     Route: 048
     Dates: start: 20000503, end: 20030129
  2. FOSAMAX [Suspect]
     Indication: OSTEOPOROSIS PROPHYLAXIS
     Dosage: PO
     Route: 048
     Dates: start: 20030129, end: 20051128

REACTIONS (10)
  - ANXIETY [None]
  - BASAL CELL CARCINOMA [None]
  - COUGH [None]
  - DEPRESSION [None]
  - DYSURIA [None]
  - IMPAIRED HEALING [None]
  - INTERCOSTAL NEURALGIA [None]
  - OSTEONECROSIS [None]
  - RESORPTION BONE INCREASED [None]
  - SKIN IRRITATION [None]
